FAERS Safety Report 7503043-4 (Version None)
Quarter: 2011Q2

REPORT INFORMATION
  Report Type: 
  Country: None (occurrence: None)
  Receive Date: 20110525
  Receipt Date: 20110520
  Transmission Date: 20111010
  Serious: Yes (Death)
  Sender: FDA-Public Use
  Company Number: JP-ASTRAZENECA-2011SE11827

PATIENT
  Age: 62 Year
  Sex: Female
  Weight: 60 kg

DRUGS (5)
  1. ZOMETA [Suspect]
     Indication: METASTASES TO BONE
     Route: 041
     Dates: start: 20100623, end: 20101110
  2. ASPIRIN [Suspect]
     Indication: CEREBRAL INFARCTION
     Route: 048
     Dates: end: 20110114
  3. GASLON N_OD [Concomitant]
     Route: 048
     Dates: end: 20110114
  4. PRIMOBOLAN [Concomitant]
     Indication: APLASTIC ANAEMIA
     Route: 048
     Dates: start: 20110426, end: 20110428
  5. IRESSA [Suspect]
     Indication: LUNG ADENOCARCINOMA
     Route: 048
     Dates: start: 20100526, end: 20110105

REACTIONS (2)
  - APLASTIC ANAEMIA [None]
  - CEREBRAL HAEMORRHAGE [None]
